FAERS Safety Report 6584981-6 (Version None)
Quarter: 2010Q1

REPORT INFORMATION
  Report Type: 
  Country: None (occurrence: None)
  Receive Date: 20100217
  Receipt Date: 20100204
  Transmission Date: 20100710
  Serious: Yes (Hospitalization)
  Sender: FDA-Public Use
  Company Number: US-ELI_LILLY_AND_COMPANY-US201002002478

PATIENT
  Age: 34 Year
  Sex: Female

DRUGS (4)
  1. CYMBALTA [Suspect]
     Dosage: 60 MG, UNKNOWN
     Route: 065
  2. CYMBALTA [Interacting]
     Dosage: 60 MG, UNKNOWN
     Route: 065
  3. PERCOCET [Interacting]
  4. ATIVAN [Interacting]

REACTIONS (3)
  - CONFUSIONAL STATE [None]
  - HOSPITALISATION [None]
  - POTENTIATING DRUG INTERACTION [None]
